FAERS Safety Report 5327975-0 (Version None)
Quarter: 2007Q2

REPORT INFORMATION
  Report Type: 
  Country: None (occurrence: None)
  Receive Date: 20070517
  Receipt Date: 20070509
  Transmission Date: 20071010
  Serious: Yes (Other)
  Sender: FDA-Public Use
  Company Number: CA-ABBOTT-07P-028-0363355-00

PATIENT
  Sex: Female
  Weight: 57.658 kg

DRUGS (4)
  1. HUMIRA [Suspect]
     Indication: CROHN'S DISEASE
     Route: 058
  2. HUMIRA [Suspect]
     Dates: start: 20060913
  3. HUMIRA [Suspect]
  4. IMODIUM [Concomitant]
     Indication: DRUG USE FOR UNKNOWN INDICATION
     Route: 048

REACTIONS (7)
  - ABSCESS [None]
  - BODY TEMPERATURE INCREASED [None]
  - HYPOTENSION [None]
  - INCISION SITE PAIN [None]
  - PROCTALGIA [None]
  - SEPSIS [None]
  - TACHYCARDIA [None]
